FAERS Safety Report 24628223 (Version 1)
Quarter: 2024Q4

REPORT INFORMATION
  Report Type: Spontaneous
  Country: US (occurrence: US)
  Receive Date: 20241117
  Receipt Date: 20241117
  Transmission Date: 20250115
  Serious: Yes (Other)
  Sender: AUROBINDO
  Company Number: US-AUROBINDO-AUR-APL-2024-055436

PATIENT
  Age: 40 Year
  Sex: Female

DRUGS (9)
  1. CLOBETASOL PROPIONATE [Suspect]
     Active Substance: CLOBETASOL PROPIONATE
     Indication: Eczema
     Dosage: UNK
     Route: 061
  2. CRISABOROLE [Suspect]
     Active Substance: CRISABOROLE
     Indication: Eczema
     Dosage: UNK
     Route: 061
  3. TRIAMCINOLONE [Suspect]
     Active Substance: TRIAMCINOLONE
     Indication: Eczema
     Dosage: UNK
     Route: 061
  4. TACROLIMUS [Suspect]
     Active Substance: TACROLIMUS
     Indication: Eczema
     Dosage: UNK
     Route: 061
  5. DUPILUMAB [Concomitant]
     Active Substance: DUPILUMAB
     Indication: Eczema
     Dosage: 600 MILLIGRAM
     Route: 065
  6. DUPILUMAB [Concomitant]
     Active Substance: DUPILUMAB
     Dosage: 300 MILLIGRAM
     Route: 065
  7. METHYLPREDNISOLONE [Concomitant]
     Active Substance: METHYLPREDNISOLONE
     Indication: Eczema
     Dosage: 250 MILLIGRAM
     Route: 065
  8. PREDNISONE [Concomitant]
     Active Substance: PREDNISONE
     Indication: Eczema
     Dosage: 40 MILLIGRAM, ONCE A DAY
  9. RITUXIMAB [Concomitant]
     Active Substance: RITUXIMAB
     Indication: Eczema
     Dosage: UNK
     Route: 065

REACTIONS (1)
  - Drug ineffective [Unknown]
